FAERS Safety Report 6179742-6 (Version None)
Quarter: 2009Q2

REPORT INFORMATION
  Report Type: 
  Country: None (occurrence: None)
  Receive Date: 20090501
  Receipt Date: 20090501
  Transmission Date: 20091009
  Serious: No
  Sender: FDA-Public Use
  Company Number: None

PATIENT
  Age: 35 Year
  Sex: Female
  Weight: 61.2356 kg

DRUGS (1)
  1. ASMANEX TWISTHALER [Suspect]
     Dosage: 220 MG TWICE INHALATION TWICE DAILY
     Dates: start: 20081201

REACTIONS (2)
  - BLISTER [None]
  - SIMILAR REACTION ON PREVIOUS EXPOSURE TO DRUG [None]
